FAERS Safety Report 12625480 (Version 1)
Quarter: 2016Q3

REPORT INFORMATION
  Report Type: Spontaneous
  Country: US (occurrence: US)
  Receive Date: 20160805
  Receipt Date: 20160805
  Transmission Date: 20161109
  Serious: Yes (Other)
  Sender: FDA-Public Use
  Company Number: US-IPSEN BIOPHARMACEUTICALS, INC.-2016-06582

PATIENT
  Sex: Female
  Weight: 52.15 kg

DRUGS (7)
  1. AMITIZA [Concomitant]
     Active Substance: LUBIPROSTONE
  2. POTASSIUM [Concomitant]
     Active Substance: POTASSIUM
  3. SOMATULINE DEPOT [Suspect]
     Active Substance: LANREOTIDE ACETATE
     Indication: NEUROENDOCRINE TUMOUR
     Dosage: 120 MG
     Route: 058
     Dates: start: 2014
  4. ACYCLOVIR. [Concomitant]
     Active Substance: ACYCLOVIR
  5. ZOLPIDEM [Concomitant]
     Active Substance: ZOLPIDEM\ZOLPIDEM TARTRATE
  6. ZENPEP [Concomitant]
     Active Substance: PANCRELIPASE AMYLASE\PANCRELIPASE LIPASE\PANCRELIPASE PROTEASE
  7. ALPRAZOLAM. [Concomitant]
     Active Substance: ALPRAZOLAM

REACTIONS (4)
  - Ligament pain [Recovered/Resolved]
  - Injection site mass [Not Recovered/Not Resolved]
  - Pneumonia [Unknown]
  - Tendon pain [Recovered/Resolved]

NARRATIVE: CASE EVENT DATE: 2014
